FAERS Safety Report 6618147-8 (Version None)
Quarter: 2010Q1

REPORT INFORMATION
  Report Type: 
  Country: None (occurrence: None)
  Receive Date: 20100308
  Receipt Date: 20100224
  Transmission Date: 20100710
  Serious: Yes (Hospitalization)
  Sender: FDA-Public Use
  Company Number: GB-PFIZER INC-2010023721

PATIENT
  Age: 60 Year
  Sex: Male

DRUGS (3)
  1. CHAMPIX [Suspect]
     Dosage: 1 MG, 2X/DAY
  2. RAMIPRIL [Concomitant]
     Dosage: 5 MG, 1X/DAY
  3. BISOPROLOL [Concomitant]
     Dosage: 5 MG, 1X/DAY

REACTIONS (3)
  - AMNESIA [None]
  - DELIRIUM [None]
  - DEMENTIA [None]
